FAERS Safety Report 14018055 (Version 1)
Quarter: 2017Q3

REPORT INFORMATION
  Report Type: Spontaneous
  Country: US (occurrence: US)
  Receive Date: 20170928
  Receipt Date: 20170928
  Transmission Date: 20171128
  Serious: Yes (Other)
  Sender: FDA-Public Use
  Company Number: US-BEH-2017083851

PATIENT
  Sex: Female

DRUGS (1)
  1. HIZENTRA [Suspect]
     Active Substance: HUMAN IMMUNOGLOBULIN G
     Indication: PRODUCT USED FOR UNKNOWN INDICATION
     Dosage: UNK
     Route: 065
     Dates: end: 201706

REACTIONS (7)
  - Pharyngeal oedema [Unknown]
  - Dysphagia [Unknown]
  - Weight decreased [Unknown]
  - Dyspepsia [Not Recovered/Not Resolved]
  - Ill-defined disorder [Unknown]
  - Dyspnoea [Unknown]
  - Hypophagia [Not Recovered/Not Resolved]
